FAERS Safety Report 11860033 (Version 1)
Quarter: 2015Q4

REPORT INFORMATION
  Report Type: Spontaneous
  Country: TW (occurrence: TW)
  Receive Date: 20151222
  Receipt Date: 20151222
  Transmission Date: 20160305
  Serious: Yes (Death)
  Sender: FDA-Public Use
  Company Number: TW-CELGENE-TWN-2015122400

PATIENT
  Age: 70 Year
  Sex: Male

DRUGS (2)
  1. AZACITIDINE. [Suspect]
     Active Substance: AZACITIDINE
     Indication: MYELODYSPLASTIC SYNDROME
     Route: 065
  2. AZACITIDINE. [Suspect]
     Active Substance: AZACITIDINE
     Indication: REFRACTORY ANAEMIA WITH AN EXCESS OF BLASTS

REACTIONS (2)
  - Septic shock [Fatal]
  - Cardiopulmonary failure [Fatal]
